FAERS Safety Report 20409834 (Version 2)
Quarter: 2022Q3

REPORT INFORMATION
  Report Type: Spontaneous
  Country: US (occurrence: US)
  Receive Date: 20220201
  Receipt Date: 20220803
  Transmission Date: 20221027
  Serious: No
  Sender: FDA-Public Use
  Company Number: US-SAREPTA THERAPEUTICS INC.-SRP2022-001974

PATIENT
  Sex: Male
  Weight: 59.7 kg

DRUGS (24)
  1. AMONDYS 45 [Suspect]
     Active Substance: CASIMERSEN
     Indication: Duchenne muscular dystrophy
     Dosage: 1700 MILLIGRAM, WEEKLY
     Route: 042
     Dates: start: 20211026
  2. VITAMIN C [Concomitant]
     Active Substance: ASCORBIC ACID
     Indication: Product used for unknown indication
     Dosage: 500 MILLIGRAM, QD
     Route: 048
  3. VITAMIN D3 [Concomitant]
     Active Substance: CHOLECALCIFEROL
     Indication: Product used for unknown indication
     Dosage: 2000 UNK, QD
     Route: 048
  4. COENZYME Q10 [Concomitant]
     Active Substance: DIETARY SUPPLEMENT\UBIDECARENONE
     Indication: Product used for unknown indication
     Dosage: 200 MILLIGRAM, BID
     Route: 048
  5. COD LIVER OIL [Concomitant]
     Active Substance: COD LIVER OIL
     Indication: Product used for unknown indication
     Dosage: 750 MILLIGRAM, BID
     Route: 048
  6. EMFLAZA [Concomitant]
     Active Substance: DEFLAZACORT
     Indication: Product used for unknown indication
     Dosage: 60 MILLIGRAM TWICE A WEEK
     Route: 048
  7. ATROVENT [Concomitant]
     Active Substance: IPRATROPIUM BROMIDE
     Indication: Product used for unknown indication
     Dosage: 34 MICROGRAM, QID PRN
  8. LISINOPRIL [Concomitant]
     Active Substance: LISINOPRIL
     Indication: Product used for unknown indication
     Dosage: 2.5 MILLIGRAM, BID
     Route: 048
  9. MAGNESIUM [Concomitant]
     Active Substance: MAGNESIUM
     Indication: Product used for unknown indication
     Dosage: 30 MILLIGRAM, BID
     Route: 048
  10. VITAMINS [Concomitant]
     Active Substance: VITAMINS
     Indication: Product used for unknown indication
     Dosage: 1 DOSAGE FORM, QD
     Route: 048
  11. NADIDE [Concomitant]
     Active Substance: NADIDE
     Indication: Product used for unknown indication
  12. PRELONE [Concomitant]
     Active Substance: PREDNISOLONE
     Indication: Product used for unknown indication
     Dosage: 60 MILLIGRAM EVERY SATURDAY, SUNDAY
     Route: 048
  13. RISPERDAL [Concomitant]
     Active Substance: RISPERIDONE
     Indication: Product used for unknown indication
     Dosage: 0.5 MILLIGRAM, BID
     Route: 048
  14. SELENIUM [Concomitant]
     Active Substance: SELENIUM
     Indication: Product used for unknown indication
     Dosage: 50 MICROGRAM, QD
     Route: 048
  15. ZOLOFT [Concomitant]
     Active Substance: SERTRALINE HYDROCHLORIDE
     Indication: Product used for unknown indication
     Dosage: 37.5 MILLIGRAM, QD
  16. TAURINE [Concomitant]
     Active Substance: TAURINE
     Indication: Product used for unknown indication
     Dosage: 500 MILLIGRAM, QD
     Route: 048
  17. .ALPHA.-TOCOPHEROL [Concomitant]
     Active Substance: .ALPHA.-TOCOPHEROL
     Indication: Product used for unknown indication
     Dosage: 100 UNITS, QD
     Route: 048
  18. GLUTAMINE [Concomitant]
     Active Substance: GLUTAMINE
     Indication: Product used for unknown indication
     Dosage: 4000 MILLIGRAM, QD
     Route: 048
  19. L-CARNITINE [LEVOCARNITINE TARTRATE] [Concomitant]
     Indication: Product used for unknown indication
     Dosage: 500 MILLIGRAM, QD
     Route: 048
  20. MAGNESIUM CITRATE [Concomitant]
     Active Substance: MAGNESIUM CITRATE
     Dosage: UNK, QD
  21. RITALIN [Concomitant]
     Active Substance: METHYLPHENIDATE HYDROCHLORIDE
     Dosage: 5 MILLIGRAM, BID
     Route: 048
  22. FAMOTIDINE [Concomitant]
     Active Substance: FAMOTIDINE
     Indication: Product used for unknown indication
     Dosage: UNK
  23. ADDERALL [Concomitant]
     Active Substance: AMPHETAMINE ASPARTATE\AMPHETAMINE SULFATE\DEXTROAMPHETAMINE SACCHARATE\DEXTROAMPHETAMINE SULFATE
     Indication: Product used for unknown indication
     Dosage: UNK
  24. DESMOPRESSIN [Concomitant]
     Active Substance: DESMOPRESSIN
     Indication: Product used for unknown indication
     Dosage: UNK

REACTIONS (1)
  - Asymptomatic COVID-19 [Unknown]
